FAERS Safety Report 19216304 (Version 1)
Quarter: 2021Q2

REPORT INFORMATION
  Report Type: Other
  Country: AU (occurrence: AU)
  Receive Date: 20210505
  Receipt Date: 20210505
  Transmission Date: 20210717
  Serious: Yes (Other)
  Sender: FDA-Public Use
  Company Number: AU-ROCHE-2311681

PATIENT

DRUGS (1)
  1. OCREVUS [Suspect]
     Active Substance: OCRELIZUMAB
     Indication: RELAPSING-REMITTING MULTIPLE SCLEROSIS
     Route: 041
     Dates: start: 20180517

REACTIONS (3)
  - Disease progression [Not Recovered/Not Resolved]
  - Fall [Unknown]
  - Drug ineffective [Unknown]
